FAERS Safety Report 13527643 (Version 1)
Quarter: 2017Q2

REPORT INFORMATION
  Report Type: Report from Study
  Country: US (occurrence: US)
  Receive Date: 20170509
  Receipt Date: 20170509
  Transmission Date: 20170830
  Serious: Yes (Other)
  Sender: FDA-Public Use
  Company Number: US-JNJFOC-20170220834

PATIENT
  Age: 54 Year
  Sex: Male

DRUGS (14)
  1. DIAZEPAM. [Concomitant]
     Active Substance: DIAZEPAM
     Route: 065
  2. LIDOCAINE HYDROCHLORIDE. [Concomitant]
     Active Substance: LIDOCAINE HYDROCHLORIDE
     Route: 065
  3. IRON [Concomitant]
     Active Substance: IRON
     Dosage: 65MG/325 MG
     Route: 065
  4. VITAMIN B12 [Concomitant]
     Active Substance: CYANOCOBALAMIN
     Route: 065
  5. ALKA-SELTZER ORIGINAL [Concomitant]
     Active Substance: ANHYDROUS CITRIC ACID\ASPIRIN\SODIUM BICARBONATE
     Route: 065
  6. STELARA [Suspect]
     Active Substance: USTEKINUMAB
     Indication: CROHN^S DISEASE
     Dosage: INDUCTION DOSE
     Route: 042
     Dates: start: 20170217
  7. TOPAMAX [Concomitant]
     Active Substance: TOPIRAMATE
     Indication: PAIN
     Route: 048
  8. CIPROFLOXACIN. [Concomitant]
     Active Substance: CIPROFLOXACIN
     Route: 065
  9. NEXIUM [Concomitant]
     Active Substance: ESOMEPRAZOLE MAGNESIUM
     Route: 065
  10. NORCO [Concomitant]
     Active Substance: ACETAMINOPHEN\HYDROCODONE BITARTRATE
     Route: 065
  11. VALIUM [Concomitant]
     Active Substance: DIAZEPAM
     Dosage: PRN
     Route: 065
  12. HYDROCODONE [Concomitant]
     Active Substance: HYDROCODONE
     Dosage: 10 TO 325 TABLETS
     Route: 065
  13. VITAMIN D3 [Concomitant]
     Active Substance: CHOLECALCIFEROL
     Route: 065
  14. BAYER ASPIRIN [Concomitant]
     Active Substance: ASPIRIN
     Route: 065

REACTIONS (14)
  - Haemorrhagic anaemia [Unknown]
  - Anal abscess [Unknown]
  - Anal fissure [Not Recovered/Not Resolved]
  - Visual impairment [Recovering/Resolving]
  - Confusional state [Recovering/Resolving]
  - Mass [Unknown]
  - Urine output increased [Not Recovered/Not Resolved]
  - Viral upper respiratory tract infection [Recovering/Resolving]
  - Crohn^s disease [Unknown]
  - Headache [Recovering/Resolving]
  - Oral mucosal blistering [Not Recovered/Not Resolved]
  - Drug ineffective [Unknown]
  - Productive cough [Unknown]
  - Pruritus generalised [Recovering/Resolving]

NARRATIVE: CASE EVENT DATE: 20170217
